FAERS Safety Report 8499925-X (Version None)
Quarter: 2012Q3

REPORT INFORMATION
  Report Type: 
  Country: None (occurrence: None)
  Receive Date: 20120710
  Receipt Date: 20120709
  Transmission Date: 20120928
  Serious: Yes (Hospitalization, Other)
  Sender: FDA-Public Use
  Company Number: PHEH2006US10890

PATIENT
  Sex: Female
  Weight: 69.1 kg

DRUGS (46)
  1. TEGELINE [Concomitant]
  2. AMOXICILLIN [Concomitant]
  3. SYMBICORT [Concomitant]
     Dosage: 4.5 MG, QD
  4. ARIXTRA [Concomitant]
  5. ASCORBIC ACID [Concomitant]
  6. OLANZAPINE [Concomitant]
  7. ATIVAN [Concomitant]
  8. ACTOPLUS MET [Concomitant]
  9. KEFLEX [Concomitant]
  10. DARVOCET-N 50 [Concomitant]
  11. AREDIA [Suspect]
  12. PREDNISONE TAB [Concomitant]
  13. TOBRAMYCIN [Concomitant]
  14. SCOPOLAMINE [Concomitant]
     Dosage: 1.5 MG, UNK
  15. NYSTATIN [Concomitant]
     Dosage: UNK UKN, 4 TIMES DAILY
  16. THALIDOMIDE [Concomitant]
  17. QUININE SULFATE [Concomitant]
  18. IRON [Concomitant]
  19. SEREVENT [Concomitant]
  20. ACYCLOVIR [Concomitant]
  21. REVLIMID [Concomitant]
  22. ADRIAMYCIN PFS [Concomitant]
  23. ZANTAC [Concomitant]
  24. PILOCARPINE [Concomitant]
  25. VINCRISTINE [Concomitant]
  26. ZOFRAN [Concomitant]
     Dosage: 4 MG, PRN
  27. NEXIUM [Concomitant]
  28. ZITHROMAX [Concomitant]
  29. PROVENTIL [Concomitant]
  30. PHENAZOPYRIDINE HCL TAB [Concomitant]
  31. SPIRIVA [Concomitant]
  32. MULTI-VITAMINS [Concomitant]
  33. IMURAN [Concomitant]
     Dosage: 25 MG, QD
  34. LOVENOX [Concomitant]
  35. LORTAB [Concomitant]
  36. IMODIUM [Concomitant]
  37. PRILOSEC [Concomitant]
  38. DECADRON [Concomitant]
  39. ALBUTEROL [Concomitant]
  40. SALAGEN [Concomitant]
     Dosage: 5 MG, TID
  41. ZOMETA [Suspect]
     Dates: start: 20030101, end: 20060101
  42. BENZONATATE [Concomitant]
  43. DIFLUCAN [Concomitant]
  44. VELCADE [Concomitant]
  45. COUMADIN [Concomitant]
  46. COMPAZINE [Concomitant]

REACTIONS (100)
  - ARTHRITIS BACTERIAL [None]
  - INJURY [None]
  - ANXIETY [None]
  - TRANSAMINASES INCREASED [None]
  - HYPOKALAEMIA [None]
  - CHRONIC OBSTRUCTIVE PULMONARY DISEASE [None]
  - INTERVERTEBRAL DISC PROTRUSION [None]
  - GASTROOESOPHAGEAL REFLUX DISEASE [None]
  - MUSCULAR WEAKNESS [None]
  - EPIGASTRIC DISCOMFORT [None]
  - HYPONATRAEMIA [None]
  - JOINT SWELLING [None]
  - OSTEOPENIA [None]
  - HERPES ZOSTER [None]
  - PNEUMOTHORAX [None]
  - STREPTOCOCCAL SEPSIS [None]
  - ABDOMINAL PAIN [None]
  - DEEP VEIN THROMBOSIS [None]
  - LIVER DISORDER [None]
  - HEPATIC FUNCTION ABNORMAL [None]
  - URINARY TRACT INFECTION [None]
  - ARTHROPATHY [None]
  - INTERVERTEBRAL DISC DEGENERATION [None]
  - LUNG DISORDER [None]
  - PNEUMONITIS [None]
  - OSTEOLYSIS [None]
  - HYPERCALCAEMIA [None]
  - PYREXIA [None]
  - NAUSEA [None]
  - MUCOSAL INFLAMMATION [None]
  - WEIGHT DECREASED [None]
  - BRONCHITIS [None]
  - LYMPHADENOPATHY MEDIASTINAL [None]
  - ADRENAL INSUFFICIENCY [None]
  - VASCULAR CALCIFICATION [None]
  - WALKING AID USER [None]
  - SUPERINFECTION [None]
  - STAPHYLOCOCCAL INFECTION [None]
  - TREMOR [None]
  - OEDEMA PERIPHERAL [None]
  - MUSCLE SPASMS [None]
  - BACK PAIN [None]
  - HYPERGLYCAEMIA [None]
  - ANAEMIA OF MALIGNANT DISEASE [None]
  - INTERSTITIAL LUNG DISEASE [None]
  - LIMB DISCOMFORT [None]
  - RENAL FAILURE [None]
  - PHLEBITIS [None]
  - BACTERIAL DIARRHOEA [None]
  - RASH ERYTHEMATOUS [None]
  - ORAL CANDIDIASIS [None]
  - DEHYDRATION [None]
  - ANAEMIA [None]
  - DYSPNOEA EXERTIONAL [None]
  - NERVE ROOT COMPRESSION [None]
  - UPPER RESPIRATORY TRACT INFECTION [None]
  - EMPHYSEMA [None]
  - ATELECTASIS [None]
  - SARCOIDOSIS [None]
  - BULLOUS LUNG DISEASE [None]
  - LUNG NEOPLASM [None]
  - DRY MOUTH [None]
  - FALL [None]
  - ARTHRALGIA [None]
  - ASTHENIA [None]
  - PLEURAL EFFUSION [None]
  - CAROTID ARTERIOSCLEROSIS [None]
  - PELVIC FRACTURE [None]
  - ADRENAL SUPPRESSION [None]
  - OSTEITIS [None]
  - DYSPHEMIA [None]
  - OSTEONECROSIS OF JAW [None]
  - CHEST PAIN [None]
  - PAIN [None]
  - PNEUMONIA [None]
  - MULTIPLE MYELOMA [None]
  - BONE LESION [None]
  - PULMONARY FIBROSIS [None]
  - MYALGIA [None]
  - CHILLS [None]
  - DYSPEPSIA [None]
  - DECREASED APPETITE [None]
  - RASH PRURITIC [None]
  - RASH MORBILLIFORM [None]
  - EATING DISORDER [None]
  - HYPERKALAEMIA [None]
  - BLEPHARITIS [None]
  - INFLAMMATION [None]
  - INFECTIVE TENOSYNOVITIS [None]
  - BRONCHIECTASIS [None]
  - OSTEOARTHRITIS [None]
  - RASH [None]
  - SPINAL OSTEOARTHRITIS [None]
  - PEPTIC ULCER [None]
  - PRODUCTIVE COUGH [None]
  - MUSCULOSKELETAL DISCOMFORT [None]
  - HIATUS HERNIA [None]
  - LUMBAR SPINAL STENOSIS [None]
  - HEPATIC LESION [None]
  - ASTHMA [None]
